FAERS Safety Report 10206008 (Version 1)
Quarter: 2014Q2

REPORT INFORMATION
  Report Type: Spontaneous
  Country: US (occurrence: None)
  Receive Date: 20140527
  Receipt Date: 20140527
  Transmission Date: 20141212
  Serious: Yes (Other)
  Sender: FDA-Public Use
  Company Number: None

PATIENT
  Age: 60 Year
  Sex: Female
  Weight: 90.27 kg

DRUGS (1)
  1. LORCASERIN HYDROCHLORIDE [Suspect]
     Indication: WEIGHT DECREASED
     Dosage: 10 MG, 1 PER DAY
     Dates: start: 20131108, end: 20131112

REACTIONS (2)
  - Heart rate increased [None]
  - Dyspnoea [None]
